FAERS Safety Report 9676111 (Version 2)
Quarter: 2014Q2

REPORT INFORMATION
  Report Type: Spontaneous
  Country: US (occurrence: US)
  Receive Date: 20131107
  Receipt Date: 20140602
  Transmission Date: 20141212
  Serious: Yes (Hospitalization)
  Sender: FDA-Public Use
  Company Number: US-SA-2013SA109125

PATIENT
  Age: 46 Year
  Sex: Female

DRUGS (5)
  1. RABIES (HDC) VACCINE [Suspect]
     Indication: IMMUNISATION
     Route: 030
     Dates: start: 20131023, end: 20131023
  2. RABIES IMMUNE GLOBULIN, HUMAN [Suspect]
     Indication: IMMUNISATION
     Route: 030
     Dates: start: 20131020, end: 20131020
  3. RABIES VACCINE [Suspect]
     Indication: IMMUNISATION
     Route: 030
     Dates: start: 20131020, end: 20131020
  4. ASPIRIN [Concomitant]
     Route: 048
  5. DIPHENHYDRAMINE [Concomitant]
     Route: 048

REACTIONS (4)
  - Chest discomfort [Recovered/Resolved]
  - Paraesthesia oral [Recovered/Resolved]
  - Swollen tongue [Recovered/Resolved]
  - Anxiety [None]
